FAERS Safety Report 22153549 (Version 5)
Quarter: 2023Q4

REPORT INFORMATION
  Report Type: Spontaneous
  Country: JP (occurrence: JP)
  Receive Date: 20230330
  Receipt Date: 20231228
  Transmission Date: 20240109
  Serious: Yes (Death, Other)
  Sender: FDA-Public Use
  Company Number: JP-BRISTOL-MYERS SQUIBB COMPANY-2023-044951

PATIENT
  Age: 69 Year
  Sex: Male

DRUGS (16)
  1. YERVOY [Suspect]
     Active Substance: IPILIMUMAB
     Indication: Non-small cell lung cancer recurrent
     Dosage: UNK, ONE TIME DOSE
     Route: 042
     Dates: start: 20201217
  2. YERVOY [Suspect]
     Active Substance: IPILIMUMAB
     Dosage: UNK, ONE TIME DOSE
     Route: 042
     Dates: start: 20210128
  3. YERVOY [Suspect]
     Active Substance: IPILIMUMAB
     Dosage: UNK, ONE TIME DOSE
     Route: 042
     Dates: start: 20210311
  4. YERVOY [Suspect]
     Active Substance: IPILIMUMAB
     Dosage: UNK, ONE TIME DOSE
     Route: 042
     Dates: start: 20210422
  5. YERVOY [Suspect]
     Active Substance: IPILIMUMAB
     Dosage: UNK, ONE TIME DOSE
     Route: 042
     Dates: start: 20210603
  6. YERVOY [Suspect]
     Active Substance: IPILIMUMAB
     Dosage: UNK, ONE TIME DOSE
     Route: 042
     Dates: start: 20210715
  7. OPDIVO [Suspect]
     Active Substance: NIVOLUMAB
     Indication: Non-small cell lung cancer recurrent
     Dosage: UNK, ONE TIME DOSE
     Route: 041
     Dates: start: 20201217
  8. OPDIVO [Suspect]
     Active Substance: NIVOLUMAB
     Dosage: UNK, ONE TIME DOSE
     Dates: start: 20210128
  9. OPDIVO [Suspect]
     Active Substance: NIVOLUMAB
     Dosage: UNK, ONE TIME DOSE
     Dates: start: 20210311
  10. OPDIVO [Suspect]
     Active Substance: NIVOLUMAB
     Dosage: UNK, ONE TIME DOSE
     Dates: start: 20210422
  11. OPDIVO [Suspect]
     Active Substance: NIVOLUMAB
     Dosage: UNK, ONE TIME DOSE
     Dates: start: 20210603
  12. OPDIVO [Suspect]
     Active Substance: NIVOLUMAB
     Dosage: UNK, ONE TIME DOSE
     Dates: start: 20210715
  13. DENOSUMAB [Concomitant]
     Active Substance: DENOSUMAB
     Indication: Non-small cell lung cancer recurrent
  14. HERBALS [Concomitant]
     Active Substance: HERBALS
     Indication: Product used for unknown indication
  15. CISPLATIN [Concomitant]
     Active Substance: CISPLATIN
     Indication: Product used for unknown indication
  16. PEMETREXED [Concomitant]
     Active Substance: PEMETREXED
     Indication: Product used for unknown indication

REACTIONS (1)
  - Death [Fatal]
